FAERS Safety Report 7718235-9 (Version None)
Quarter: 2011Q3

REPORT INFORMATION
  Report Type: 
  Country: None (occurrence: None)
  Receive Date: 20110830
  Receipt Date: 20110820
  Transmission Date: 20111222
  Serious: Yes (Other)
  Sender: FDA-Public Use
  Company Number: PHHY2011BR75279

PATIENT
  Sex: Male

DRUGS (3)
  1. FORMOTEROL FUMARATE [Suspect]
     Indication: FATIGUE
     Dosage: UNK UKN, UNK
  2. NAZONEX [Concomitant]
     Dosage: 50 UG, UNK
  3. AZITHROMYCIN [Suspect]
     Indication: ADENOIDAL DISORDER

REACTIONS (2)
  - TONSILLITIS [None]
  - ADENOIDAL DISORDER [None]
